FAERS Safety Report 13508842 (Version 1)
Quarter: 2017Q2

REPORT INFORMATION
  Report Type: Spontaneous
  Country: US (occurrence: US)
  Receive Date: 20170503
  Receipt Date: 20170503
  Transmission Date: 20170830
  Serious: No
  Sender: FDA-Public Use
  Company Number: US-SHIRE-US201709883

PATIENT
  Age: 60 Year
  Sex: Female
  Weight: 86.17 kg

DRUGS (5)
  1. BISOPROLOL FUMARATE. [Concomitant]
     Active Substance: BISOPROLOL FUMARATE
     Indication: HYPERTENSION
     Dosage: 5 MG, 1X/DAY:QD
     Route: 048
     Dates: start: 201601
  2. CLONAZEPAM. [Concomitant]
     Active Substance: CLONAZEPAM
     Indication: ANXIETY
     Dosage: 0.5 MG, AS REQ^D (PRN BID)
     Route: 048
     Dates: start: 2016
  3. XIIDRA [Suspect]
     Active Substance: LIFITEGRAST
     Indication: DRY EYE
     Dosage: 1 GTT, 2X/DAY:BID
     Route: 047
     Dates: start: 20170412, end: 20170413
  4. XIIDRA [Suspect]
     Active Substance: LIFITEGRAST
     Dosage: 1 GTT, 2X/DAY:BID
     Route: 047
     Dates: start: 20170422
  5. ALBUTEROL SULFATE. [Concomitant]
     Active Substance: ALBUTEROL SULFATE
     Indication: OBSTRUCTIVE AIRWAYS DISORDER
     Dosage: 2 DF, AS REQ^D (EVERY 4 HOURS PRN)
     Route: 055
     Dates: start: 2011

REACTIONS (4)
  - Instillation site reaction [Recovered/Resolved]
  - Instillation site pain [Recovered/Resolved]
  - Eye disorder [Not Recovered/Not Resolved]
  - Condition aggravated [Not Recovered/Not Resolved]

NARRATIVE: CASE EVENT DATE: 20170412
